FAERS Safety Report 13072628 (Version 2)
Quarter: 2018Q1

REPORT INFORMATION
  Report Type: Spontaneous
  Country: US (occurrence: US)
  Receive Date: 20161229
  Receipt Date: 20180115
  Transmission Date: 20180508
  Serious: Yes (Other)
  Sender: FDA-Public Use
  Company Number: US-SA-2016SA187463

PATIENT
  Age: 58 Year
  Sex: Female
  Weight: 77.11 kg

DRUGS (7)
  1. TAXOTERE [Suspect]
     Active Substance: DOCETAXEL
     Indication: INVASIVE DUCTAL BREAST CARCINOMA
     Dosage: 75 MG/M2 IV
     Route: 051
     Dates: start: 20100323, end: 20100323
  2. PARAPLATIN [Concomitant]
     Active Substance: CARBOPLATIN
     Indication: INVASIVE DUCTAL BREAST CARCINOMA
     Route: 042
     Dates: start: 20100323, end: 20100323
  3. PARAPLATIN [Concomitant]
     Active Substance: CARBOPLATIN
     Indication: INVASIVE DUCTAL BREAST CARCINOMA
     Route: 042
     Dates: start: 20100706, end: 20100706
  4. ESTRACE [Concomitant]
     Active Substance: ESTRADIOL
     Dosage: 0.01 % CREAM
     Route: 065
     Dates: start: 20170417
  5. HERCEPTIN [Concomitant]
     Active Substance: TRASTUZUMAB
     Indication: INVASIVE DUCTAL BREAST CARCINOMA
     Route: 042
     Dates: start: 20100323, end: 20100323
  6. HERCEPTIN [Concomitant]
     Active Substance: TRASTUZUMAB
     Indication: INVASIVE DUCTAL BREAST CARCINOMA
     Route: 042
     Dates: start: 20100706, end: 20100706
  7. TAXOTERE [Suspect]
     Active Substance: DOCETAXEL
     Indication: INVASIVE DUCTAL BREAST CARCINOMA
     Dosage: 75 MG/M2 IV
     Route: 051
     Dates: start: 20100706, end: 20100706

REACTIONS (5)
  - Anxiety [Unknown]
  - Pain [Unknown]
  - Alopecia [Not Recovered/Not Resolved]
  - Psychological trauma [Unknown]
  - Emotional distress [Unknown]

NARRATIVE: CASE EVENT DATE: 20110106
